FAERS Safety Report 7361239-9 (Version None)
Quarter: 2011Q1

REPORT INFORMATION
  Report Type: 
  Country: None (occurrence: None)
  Receive Date: 20110318
  Receipt Date: 20110307
  Transmission Date: 20110831
  Serious: Yes (Hospitalization)
  Sender: FDA-Public Use
  Company Number: PHHY2011US18498

PATIENT
  Sex: Female

DRUGS (3)
  1. RECLAST [Suspect]
     Dosage: 5 MG, UNK
     Dates: start: 20110301
  2. STALEVO 100 [Concomitant]
  3. LEXAPRO [Concomitant]

REACTIONS (7)
  - HEADACHE [None]
  - ARTHRALGIA [None]
  - PAIN [None]
  - SKIN DISCOLOURATION [None]
  - MOVEMENT DISORDER [None]
  - INFLUENZA LIKE ILLNESS [None]
  - BURNING SENSATION [None]
